FAERS Safety Report 23562696 (Version 2)
Quarter: 2024Q1

REPORT INFORMATION
  Report Type: Spontaneous
  Country: US (occurrence: US)
  Receive Date: 20240226
  Receipt Date: 20240319
  Transmission Date: 20240409
  Serious: No
  Sender: FDA-Public Use
  Company Number: US-SA-SAC20240214001206

PATIENT
  Age: 32 Year
  Sex: Male
  Weight: 83.9 kg

DRUGS (1)
  1. DUPIXENT [Suspect]
     Active Substance: DUPILUMAB
     Indication: Dermatitis atopic
     Dosage: 300 MG, QOW
     Route: 058

REACTIONS (5)
  - Middle insomnia [Not Recovered/Not Resolved]
  - Dry skin [Unknown]
  - Pruritus [Recovered/Resolved]
  - Insomnia [Recovered/Resolved]
  - Inappropriate schedule of product administration [Unknown]

NARRATIVE: CASE EVENT DATE: 20240201
